APPROVED DRUG PRODUCT: MITOSOL
Active Ingredient: MITOMYCIN
Strength: 0.2MG/VIAL
Dosage Form/Route: FOR SOLUTION;TOPICAL
Application: N022572 | Product #001
Applicant: GLAUKOS CORP
Approved: Feb 7, 2012 | RLD: Yes | RS: Yes | Type: RX

PATENTS:
Patent 9649428 | Expires: May 21, 2029
Patent 9539241 | Expires: Jan 2, 2028
Patent 8186511 | Expires: Jul 19, 2026
Patent 7806265 | Expires: Feb 1, 2029
Patent 9205075 | Expires: Jul 19, 2026